FAERS Safety Report 7804111-X (Version None)
Quarter: 2011Q4

REPORT INFORMATION
  Report Type: 
  Country: None (occurrence: None)
  Receive Date: 20111010
  Receipt Date: 20110930
  Transmission Date: 20120403
  Serious: Yes (Hospitalization, Other)
  Sender: FDA-Public Use
  Company Number: US-ASTELLAS-2011US006162

PATIENT

DRUGS (8)
  1. CITALOPRAM [Concomitant]
     Indication: TREMOR
     Dosage: 40 MG, UID/QD
     Route: 048
     Dates: start: 20090101
  2. CALCIUM D [Concomitant]
     Indication: BONE DISORDER
     Dosage: 500 MG, UID/QD
     Route: 048
     Dates: start: 20050101
  3. LISINOPRIL [Concomitant]
     Indication: CARDIOVASCULAR EVENT PROPHYLAXIS
     Dosage: 2.5 MG, QOD
     Route: 048
     Dates: start: 20100101
  4. FUROSEMIDE [Concomitant]
     Indication: DIURETIC THERAPY
     Dosage: 40 MG, UID/QD
     Route: 048
     Dates: start: 20100715
  5. CARVEDILOL [Concomitant]
     Indication: CARDIAC DISORDER
     Dosage: 6.25 MG, BID
     Route: 049
     Dates: start: 20090505
  6. GLIPIZIDE [Concomitant]
     Indication: DIABETES MELLITUS
     Dosage: 5 MG, UID/QD
     Route: 048
     Dates: start: 20050101
  7. PROGRAF [Suspect]
     Indication: LIVER TRANSPLANT
     Dosage: 1 MG, BID
     Route: 048
     Dates: start: 20050101
  8. ASPIRIN [Concomitant]
     Indication: CARDIAC DISORDER
     Dosage: 162 MG, UID/QD
     Route: 048
     Dates: start: 20090505

REACTIONS (4)
  - RENAL DISORDER [None]
  - FALL [None]
  - HIP ARTHROPLASTY [None]
  - MYOCARDIAL INFARCTION [None]
